FAERS Safety Report 7597317-9 (Version None)
Quarter: 2011Q3

REPORT INFORMATION
  Report Type: 
  Country: None (occurrence: None)
  Receive Date: 20110708
  Receipt Date: 20110502
  Transmission Date: 20111222
  Serious: No
  Sender: FDA-Public Use
  Company Number: US-GLAXOSMITHKLINE-A0925347A

PATIENT
  Age: 65 Year
  Sex: Female

DRUGS (2)
  1. PREDNISONE [Concomitant]
  2. FLOVENT [Suspect]
     Indication: ASTHMA
     Dosage: 2PUFF TWICE PER DAY
     Route: 055
     Dates: start: 20100101

REACTIONS (6)
  - NERVOUSNESS [None]
  - PSYCHOMOTOR HYPERACTIVITY [None]
  - PALPITATIONS [None]
  - FEELING JITTERY [None]
  - ARRHYTHMIA [None]
  - DIZZINESS [None]
